FAERS Safety Report 10783800 (Version 2)
Quarter: 2015Q3

REPORT INFORMATION
  Report Type: Spontaneous
  Country: US (occurrence: US)
  Receive Date: 20150210
  Receipt Date: 20150819
  Transmission Date: 20151125
  Serious: No
  Sender: FDA-Public Use
  Company Number: US-GILEAD-2015-0136522

PATIENT
  Age: 74 Year
  Sex: Female

DRUGS (20)
  1. FUROSEMIDE. [Concomitant]
     Active Substance: FUROSEMIDE
  2. XARELTO [Concomitant]
     Active Substance: RIVAROXABAN
  3. FERROUS SULFATE [Concomitant]
     Active Substance: FERROUS SULFATE\FERROUS SULFATE, DRIED
  4. HYDROCHLOROTHIAZIDE. [Concomitant]
     Active Substance: HYDROCHLOROTHIAZIDE
  5. LISINOPRIL. [Concomitant]
     Active Substance: LISINOPRIL
  6. AZITHROMYCIN [Concomitant]
     Active Substance: AZITHROMYCIN ANHYDROUS
  7. ELIQUIS [Concomitant]
     Active Substance: APIXABAN
  8. LIVALO [Concomitant]
     Active Substance: PITAVASTATIN CALCIUM
  9. METOLAZONE. [Concomitant]
     Active Substance: METOLAZONE
  10. DULERA [Concomitant]
     Active Substance: FORMOTEROL FUMARATE DIHYDRATE\MOMETASONE FUROATE
  11. NASONEX [Concomitant]
     Active Substance: MOMETASONE FUROATE
  12. LETAIRIS [Suspect]
     Active Substance: AMBRISENTAN
     Indication: COR PULMONALE CHRONIC
     Dates: start: 20140715
  13. CARTIA XT [Concomitant]
     Active Substance: DILTIAZEM HYDROCHLORIDE
  14. IBANDRONATE SODIUM. [Concomitant]
     Active Substance: IBANDRONATE SODIUM
  15. SPIRONOLACTONE. [Concomitant]
     Active Substance: SPIRONOLACTONE
  16. ADCIRCA [Concomitant]
     Active Substance: TADALAFIL
  17. LEVALBUTEROL                       /01419301/ [Concomitant]
  18. CIPRODEX [Concomitant]
     Active Substance: CIPROFLOXACIN HYDROCHLORIDE\DEXAMETHASONE
  19. METOPROLOL TARTRATE. [Concomitant]
     Active Substance: METOPROLOL TARTRATE
  20. PANTOPRAZOLE [Concomitant]
     Active Substance: PANTOPRAZOLE SODIUM

REACTIONS (1)
  - Oedema [Not Recovered/Not Resolved]
